FAERS Safety Report 5811486-X (Version None)
Quarter: 2008Q3

REPORT INFORMATION
  Report Type: 
  Country: None (occurrence: None)
  Receive Date: 20080714
  Receipt Date: 20080714
  Transmission Date: 20090109
  Serious: No
  Sender: FDA-Public Use
  Company Number: None

PATIENT
  Age: 64 Year
  Sex: Male
  Weight: 106.1417 kg

DRUGS (1)
  1. LIPITOR [Suspect]
     Indication: HYPERCHOLESTEROLAEMIA
     Dosage: 20MG 1 PER DAY PO
     Route: 048
     Dates: start: 20050101, end: 20080701

REACTIONS (2)
  - ARTHRALGIA [None]
  - ASTHENIA [None]
